FAERS Safety Report 6387222-8 (Version None)
Quarter: 2009Q4

REPORT INFORMATION
  Report Type: 
  Country: None (occurrence: None)
  Receive Date: 20091002
  Receipt Date: 20090923
  Transmission Date: 20100525
  Serious: Yes (Hospitalization)
  Sender: FDA-Public Use
  Company Number: FR-WYE-H11318209

PATIENT
  Sex: Female

DRUGS (4)
  1. CORDARONE [Suspect]
     Dosage: 400 MG/DAY FROM UNKNOWN DATE TO 11-JUL-2009; THEN DOSE REDUCED TO 200 MG/DAY TILL D/C ON 13-JUL-2009
     Route: 048
  2. CARDENSIEL [Concomitant]
     Dosage: DOSE AND FREQUENCY NOT SPECIFIED
     Route: 048
  3. DURAGESIC-100 [Concomitant]
     Dosage: UNKNOWN DOSE FROM UNKNOWN TO JUL-2009; THEN WAS 12 MCG EVERY 3 DAYS FROM 30-JUL-2009 TO UNKNOWN
     Route: 048
  4. PREVISCAN [Interacting]
     Dosage: DATE UNKNOWN TO 13-JUL-2009 10 MG DAILY; THEN RESTARTED ON 15-JUL-2009  AT 5 MG/DAY
     Route: 048

REACTIONS (6)
  - CYTOLYTIC HEPATITIS [None]
  - DRUG INTERACTION [None]
  - INTERNATIONAL NORMALISED RATIO INCREASED [None]
  - OVERDOSE [None]
  - PROTHROMBIN TIME SHORTENED [None]
  - WEIGHT DECREASED [None]
